FAERS Safety Report 6374716-4 (Version None)
Quarter: 2009Q3

REPORT INFORMATION
  Report Type: 
  Country: None (occurrence: None)
  Receive Date: 20090924
  Receipt Date: 20090909
  Transmission Date: 20100115
  Serious: Yes (Other)
  Sender: FDA-Public Use
  Company Number: GB-PFIZER INC-2009265788

PATIENT
  Age: 60 Year

DRUGS (6)
  1. SERTRALINE HCL [Suspect]
     Indication: DEPRESSION
     Dosage: 25 MG, 1X/DAY
     Route: 048
     Dates: start: 20090216, end: 20090404
  2. ACETYLSALICYLIC ACID [Concomitant]
     Indication: DIABETES MELLITUS
     Dosage: 75 MG, UNK
     Dates: start: 20040101
  3. HYPURIN BOVINE LENTE [Concomitant]
     Indication: DIABETES MELLITUS
     Dosage: UNK
     Dates: start: 19950101
  4. LEVOTHYROXINE SODIUM [Concomitant]
     Indication: DIABETES MELLITUS
     Dosage: 50 UG, UNK
     Route: 048
     Dates: start: 20050101
  5. MACROGOL [Concomitant]
     Dosage: 13.8 G, UNK
  6. OLMESARTAN MEDOXOMIL [Concomitant]
     Indication: DIABETES MELLITUS
     Dosage: 20 MG, 1X/DAY
     Route: 048
     Dates: start: 20060101

REACTIONS (13)
  - ABNORMAL DREAMS [None]
  - AGITATION [None]
  - AMNESIA [None]
  - ARTHRALGIA [None]
  - DIZZINESS [None]
  - DYSPEPSIA [None]
  - EAR PAIN [None]
  - EPILEPSY [None]
  - EYE DISORDER [None]
  - GRAND MAL CONVULSION [None]
  - HEADACHE [None]
  - PARAESTHESIA [None]
  - SWOLLEN TONGUE [None]
